FAERS Safety Report 5085022-2 (Version None)
Quarter: 2006Q3

REPORT INFORMATION
  Report Type: 
  Country: None (occurrence: None)
  Receive Date: 20060815
  Receipt Date: 20060727
  Transmission Date: 20061208
  Serious: Yes (Other)
  Sender: FDA-Public Use
  Company Number: US200605001800

PATIENT
  Age: 83 Year
  Sex: Female

DRUGS (2)
  1. FORTEO [Suspect]
     Indication: OSTEOPOROSIS
     Dosage: 20 UG, DAILY (1/D)
     Dates: start: 20051201, end: 20060601
  2. FORTEO PEN (FORTEO PEN) [Concomitant]

REACTIONS (4)
  - BASAL CELL CARCINOMA [None]
  - BREAST ENLARGEMENT [None]
  - HAIR GROWTH ABNORMAL [None]
  - PHARMACEUTICAL PRODUCT COMPLAINT [None]
